FAERS Safety Report 7561785-9 (Version None)
Quarter: 2011Q2

REPORT INFORMATION
  Report Type: 
  Country: None (occurrence: None)
  Receive Date: 20110621
  Receipt Date: 20110614
  Transmission Date: 20111010
  Serious: Yes (Death)
  Sender: FDA-Public Use
  Company Number: PH-BAXTER-2011BH019787

PATIENT
  Age: 87 Year
  Sex: Female

DRUGS (2)
  1. DIANEAL [Suspect]
     Indication: PERITONEAL DIALYSIS
     Route: 033
     Dates: start: 20110610
  2. DIANEAL [Suspect]
     Route: 033
     Dates: start: 20110610

REACTIONS (1)
  - MYOCARDIAL INFARCTION [None]
